FAERS Safety Report 9031462 (Version 1)
Quarter: 2013Q1

REPORT INFORMATION
  Report Type: Spontaneous
  Country: RU (occurrence: RU)
  Receive Date: 20130124
  Receipt Date: 20130124
  Transmission Date: 20140127
  Serious: Yes (Other)
  Sender: FDA-Public Use
  Company Number: RU-ROCHE-1182152

PATIENT
  Age: 52 Year
  Sex: Female

DRUGS (2)
  1. AVASTIN [Suspect]
     Indication: RENAL CANCER METASTATIC
     Route: 042
  2. INTERFERON ALFA-2A [Suspect]
     Indication: RENAL CANCER METASTATIC
     Route: 065

REACTIONS (2)
  - Disease progression [Not Recovered/Not Resolved]
  - Syncope [Recovered/Resolved]
